FAERS Safety Report 21068032 (Version 2)
Quarter: 2022Q3

REPORT INFORMATION
  Report Type: Spontaneous
  Country: US (occurrence: None)
  Receive Date: 20220712
  Receipt Date: 20220727
  Transmission Date: 20221026
  Serious: Yes (Hospitalization)
  Sender: FDA-Public Use
  Company Number: US-Ultragenyx Pharmaceutical Inc.-US-UGNX-22-00433

PATIENT
  Age: 18 Year
  Sex: Male
  Weight: 60.7 kg

DRUGS (4)
  1. DOJOLVI [Suspect]
     Active Substance: TRIHEPTANOIN
     Indication: Very long-chain acyl-coenzyme A dehydrogenase deficiency
     Dosage: 10ML, FOUR TIMES DAILY VIA G-TUBE
     Dates: start: 202112
  2. DOJOLVI [Suspect]
     Active Substance: TRIHEPTANOIN
     Indication: Carnitine-acylcarnitine translocase deficiency
  3. LEVOCARNITINE [Concomitant]
     Active Substance: LEVOCARNITINE
     Indication: Product used for unknown indication
     Dosage: 1 G/10 ML SOLUTION
  4. RIBOFLAVIN-5-PHOSPHATE SODIUM [Concomitant]
     Indication: Product used for unknown indication

REACTIONS (2)
  - Blood creatine phosphokinase increased [Unknown]
  - Hospitalisation [Unknown]

NARRATIVE: CASE EVENT DATE: 20220628
